FAERS Safety Report 7525164-2 (Version None)
Quarter: 2011Q2

REPORT INFORMATION
  Report Type: 
  Country: None (occurrence: None)
  Receive Date: 20110526
  Receipt Date: 20110511
  Transmission Date: 20111010
  Serious: Yes (Other)
  Sender: FDA-Public Use
  Company Number: 2009S1004850

PATIENT
  Age: 62 Year
  Sex: Male

DRUGS (6)
  1. ZOCOR [Concomitant]
  2. HYDROCHLOROTHIAZIDE [Concomitant]
  3. ASPIRIN [Concomitant]
  4. METOPROLOL TARTRATE [Concomitant]
  5. E-Z-EM PREP LYTE [Suspect]
     Indication: COLONOSCOPY
     Dosage: PO
     Route: 048
     Dates: start: 20020520, end: 20020520
  6. LOTENSIN /00909102/ [Concomitant]

REACTIONS (9)
  - URINE FLOW DECREASED [None]
  - DYSGEUSIA [None]
  - NOCTURIA [None]
  - POLLAKIURIA [None]
  - PROSTATIC DISORDER [None]
  - RENAL ARTERY STENOSIS [None]
  - RENAL FAILURE CHRONIC [None]
  - URINARY RETENTION [None]
  - HYPERPARATHYROIDISM [None]
